FAERS Safety Report 7271829-X (Version None)
Quarter: 2011Q1

REPORT INFORMATION
  Report Type: 
  Country: None (occurrence: None)
  Receive Date: 20110203
  Receipt Date: 20110120
  Transmission Date: 20110831
  Serious: Yes (Death)
  Sender: FDA-Public Use
  Company Number: IE-MEDIMMUNE-MEDI-0010057

PATIENT
  Sex: Male

DRUGS (4)
  1. VALPROATE SODIUM [Concomitant]
  2. CAFFEINE [Concomitant]
  3. HYOSCINE HBR HYT [Concomitant]
  4. SYNAGIS [Suspect]
     Route: 030
     Dates: start: 20091002, end: 20091130

REACTIONS (1)
  - APNOEA [None]
